FAERS Safety Report 10935339 (Version 1)
Quarter: 2015Q1

REPORT INFORMATION
  Report Type: Spontaneous
  Country: AU (occurrence: AU)
  Receive Date: 20150320
  Receipt Date: 20150320
  Transmission Date: 20150721
  Serious: Yes (Other)
  Sender: FDA-Public Use
  Company Number: AU-ASTRAZENECA-2015SE24407

PATIENT
  Age: 54 Year
  Sex: Female
  Weight: 80.5 kg

DRUGS (5)
  1. BYDUREON [Suspect]
     Active Substance: EXENATIDE
     Route: 058
     Dates: start: 20140726, end: 20141205
  2. DIABEX [Concomitant]
     Active Substance: METFORMIN HYDROCHLORIDE
  3. MICARDIS PLUS [Concomitant]
     Active Substance: HYDROCHLOROTHIAZIDE\TELMISARTAN
  4. DIAMICRON [Concomitant]
     Active Substance: GLICLAZIDE
  5. OSTELIN VITAMIN D [Concomitant]

REACTIONS (1)
  - Autoimmune hepatitis [Recovering/Resolving]

NARRATIVE: CASE EVENT DATE: 20141114
